FAERS Safety Report 7125742-9 (Version None)
Quarter: 2010Q4

REPORT INFORMATION
  Report Type: 
  Country: None (occurrence: None)
  Receive Date: 20101129
  Receipt Date: 20101118
  Transmission Date: 20110411
  Serious: Yes (Other)
  Sender: FDA-Public Use
  Company Number: B0680342A

PATIENT
  Sex: Male

DRUGS (4)
  1. PAXIL [Suspect]
     Indication: DEPRESSION
     Dosage: 10MG PER DAY
     Route: 048
     Dates: start: 20100716
  2. DOGMATYL [Concomitant]
     Indication: GASTROINTESTINAL DISORDER
     Route: 048
     Dates: start: 20100518
  3. CHINESE MEDICINE [Concomitant]
     Indication: DEPRESSION
     Dosage: 10G PER DAY
     Dates: start: 20100518, end: 20100930
  4. AMOBAN [Concomitant]
     Indication: INSOMNIA
     Dosage: 7.5MG PER DAY
     Route: 048
     Dates: start: 20100614, end: 20101003

REACTIONS (4)
  - AGGRESSION [None]
  - CONFUSIONAL STATE [None]
  - INAPPROPRIATE AFFECT [None]
  - INTENTIONAL SELF-INJURY [None]
